FAERS Safety Report 9890351 (Version 2)
Quarter: 2014Q1

REPORT INFORMATION
  Report Type: Spontaneous
  Country: JP (occurrence: JP)
  Receive Date: 20140212
  Receipt Date: 20140212
  Transmission Date: 20141002
  Serious: Yes (Death, Other)
  Sender: FDA-Public Use
  Company Number: JP-009507513-2009-193910-NL

PATIENT
  Age: 38 Year
  Sex: Female
  Weight: 60 kg

DRUGS (3)
  1. MARVELON 28 [Suspect]
     Indication: DYSMENORRHOEA
     Dosage: CONTINUING: NA
     Route: 048
     Dates: start: 20090217, end: 2009
  2. LUNABELL [Suspect]
     Indication: ENDOMETRIOSIS
     Dosage: CONTINUING: NO
     Route: 048
     Dates: start: 20090120, end: 20090209
  3. [COMPOSITION UNSPECIFIED] [Concomitant]
     Indication: MENTAL DISORDER
     Dosage: UNK DF, UNK
     Dates: start: 20090306

REACTIONS (2)
  - Pulmonary embolism [Fatal]
  - Off label use [Unknown]
